FAERS Safety Report 18687759 (Version 1)
Quarter: 2020Q4

REPORT INFORMATION
  Report Type: Spontaneous
  Country: CN (occurrence: CN)
  Receive Date: 20201231
  Receipt Date: 20201231
  Transmission Date: 20210114
  Serious: Yes (Other)
  Sender: FDA-Public Use
  Company Number: CN-PFIZER INC-2020513232

PATIENT
  Age: 46 Year
  Sex: Female
  Weight: 50 kg

DRUGS (8)
  1. PHARMORUBICIN [Suspect]
     Active Substance: EPIRUBICIN
     Indication: NEOPLASM MALIGNANT
  2. SODIUM CHLORIDE. [Concomitant]
     Active Substance: SODIUM CHLORIDE
     Indication: CONGENITAL HYPOTHYROIDISM
  3. PHARMORUBICIN [Suspect]
     Active Substance: EPIRUBICIN
     Indication: BREAST CANCER
  4. PHARMORUBICIN [Suspect]
     Active Substance: EPIRUBICIN
     Indication: SPINAL OSTEOARTHRITIS
     Dosage: 120 MG, 1X/DAY
     Route: 041
     Dates: start: 20201124, end: 20201124
  5. SODIUM CHLORIDE. [Concomitant]
     Active Substance: SODIUM CHLORIDE
     Indication: SPINAL OSTEOARTHRITIS
     Dosage: 250 ML, 1X/DAY
     Route: 041
     Dates: start: 20201124, end: 20201124
  6. SODIUM CHLORIDE. [Concomitant]
     Active Substance: SODIUM CHLORIDE
     Indication: BREAST CANCER
  7. SODIUM CHLORIDE. [Concomitant]
     Active Substance: SODIUM CHLORIDE
     Indication: CHEMOTHERAPY
  8. PHARMORUBICIN [Suspect]
     Active Substance: EPIRUBICIN
     Indication: CONGENITAL HYPOTHYROIDISM

REACTIONS (1)
  - Alanine aminotransferase increased [Unknown]

NARRATIVE: CASE EVENT DATE: 20201214
